FAERS Safety Report 18409063 (Version 1)
Quarter: 2020Q4

REPORT INFORMATION
  Report Type: Spontaneous
  Country: CN (occurrence: CN)
  Receive Date: 20201021
  Receipt Date: 20201021
  Transmission Date: 20210114
  Serious: Yes (Other)
  Sender: FDA-Public Use
  Company Number: CN-009507513-2010CHN006461

PATIENT
  Age: 64 Year
  Sex: Male
  Weight: 70 kg

DRUGS (3)
  1. CARBOPLATIN. [Suspect]
     Active Substance: CARBOPLATIN
     Indication: ADENOSQUAMOUS CELL LUNG CANCER STAGE III
     Dosage: 600 MILLIGRAM, QD, IVGTT
     Dates: start: 20200921, end: 20200921
  2. KEYTRUDA [Suspect]
     Active Substance: PEMBROLIZUMAB
     Indication: ADENOSQUAMOUS CELL LUNG CANCER STAGE III
     Dosage: 100MG, QD, IVGTT, SOLUTION FOR INJECTION
     Route: 041
     Dates: start: 20200921, end: 20200921
  3. PACLITAXEL ALBUMIN [Suspect]
     Active Substance: PACLITAXEL
     Indication: ADENOSQUAMOUS CELL LUNG CANCER STAGE III
     Dosage: 400 MILLIGRAM, QD, IVGTT
     Dates: start: 20200921, end: 20200921

REACTIONS (1)
  - Myelosuppression [Recovering/Resolving]

NARRATIVE: CASE EVENT DATE: 20200929
